FAERS Safety Report 18283010 (Version 1)
Quarter: 2020Q3

REPORT INFORMATION
  Report Type: Spontaneous
  Country: DE (occurrence: DE)
  Receive Date: 20200918
  Receipt Date: 20200918
  Transmission Date: 20201103
  Serious: Yes (Hospitalization, Other)
  Sender: FDA-Public Use
  Company Number: DE-PFIZER INC-2020360389

PATIENT
  Age: 62 Year
  Sex: Male

DRUGS (19)
  1. LERCANIDIPINE [Suspect]
     Active Substance: LERCANIDIPINE
     Dosage: 10 MG, 2X/DAY, (0.5?0?0.5?0)
  2. SALBUTAMOL [Concomitant]
     Active Substance: ALBUTEROL
     Dosage: 0.1 MG, AS NEEDED (DOSAGE AEROSOL)
  3. PREGABALIN. [Concomitant]
     Active Substance: PREGABALIN
     Dosage: 75 MG, 2X/DAY (1?0?1?0)
  4. SPIRONOLACTON [Suspect]
     Active Substance: SPIRONOLACTONE
     Dosage: 25 MG, 1X/DAY (0.5?0?0?0)
  5. COLECALCIFEROL [Concomitant]
     Active Substance: CHOLECALCIFEROL
     Dosage: 1000 IU, 1X/DAY
  6. OMEPRAZOL [Concomitant]
     Active Substance: OMEPRAZOLE
     Dosage: 40 MG, 1X/DAY, (0?0?1?0)
  7. ACTRAPID [Concomitant]
     Active Substance: INSULIN HUMAN
     Dosage: UNK (ACCORDING TO PLAN, SOLUTION FOR INJECTION/INFUSION)
     Route: 058
  8. TORASEMID [Suspect]
     Active Substance: TORSEMIDE
     Dosage: 40 MG, 2X/DAY (2?2?0?0)
  9. INSULIN GLARGINE [Concomitant]
     Active Substance: INSULIN GLARGINE
     Dosage: UNK (ACCORDING TO PLAN, SOLUTION FOR INJECTION/INFUSION)
     Route: 058
  10. EZETIMIBE. [Suspect]
     Active Substance: EZETIMIBE
     Dosage: 10 MG, 1X/DAY (1?0?0?0)
  11. INDAPAMIDE/PERINDOPRIL [Suspect]
     Active Substance: INDAPAMIDE\PERINDOPRIL
     Dosage: UNK, 1X/DAY (1.25/5 MG, 1?0?0?0)
  12. ATORVASTATIN CALCIUM. [Suspect]
     Active Substance: ATORVASTATIN CALCIUM
     Dosage: 40 MG, 1X/DAY, (0?0?1?0)
  13. IBUPROFEN. [Suspect]
     Active Substance: IBUPROFEN
     Dosage: 600 MG, 1X/DAY, (1?0?0?0)
  14. BUPROPION. [Concomitant]
     Active Substance: BUPROPION
     Dosage: 150 MG, AS NEEDED
  15. GLYCEROLTRINITRAT [Concomitant]
     Active Substance: NITROGLYCERIN
     Dosage: 0.4 MG, AS NEEDED
  16. FORMOTEROL [Concomitant]
     Active Substance: FORMOTEROL
     Dosage: 12 UG, 1X/DAY, (1?0?0?0)
  17. ASPIRIN. [Concomitant]
     Active Substance: ASPIRIN
     Dosage: 100 MG, 1X/DAY, (0?1?0?0, DOSAGE AEROSOL)
  18. TAMSULOSIN [Concomitant]
     Active Substance: TAMSULOSIN
     Dosage: 0.4 MG, 1X/DAY
  19. VERAPAMIL [Concomitant]
     Active Substance: VERAPAMIL HYDROCHLORIDE
     Dosage: 120 MG, 2X/DAY, (1?0?1?0)

REACTIONS (8)
  - Rash [Recovering/Resolving]
  - Acute kidney injury [Recovering/Resolving]
  - Condition aggravated [Recovering/Resolving]
  - Gamma-glutamyltransferase increased [Unknown]
  - Dyspnoea exertional [Recovering/Resolving]
  - Dry skin [Recovering/Resolving]
  - Blood sodium decreased [Unknown]
  - Oedema peripheral [Recovering/Resolving]

NARRATIVE: CASE EVENT DATE: 20200804
